FAERS Safety Report 9109910 (Version 2)
Quarter: 2013Q3

REPORT INFORMATION
  Report Type: Spontaneous
  Country: US (occurrence: US)
  Receive Date: 20130222
  Receipt Date: 20130926
  Transmission Date: 20140515
  Serious: Yes (Hospitalization)
  Sender: FDA-Public Use
  Company Number: US-UCBSA-078761

PATIENT
  Age: 53 Year
  Sex: Female

DRUGS (2)
  1. KEPPRA [Suspect]
     Indication: CONVULSION
  2. KEPPRA XR [Suspect]
     Indication: CONVULSION

REACTIONS (4)
  - Pancreatic carcinoma [Not Recovered/Not Resolved]
  - Feeling hot [Unknown]
  - Depression [Unknown]
  - Inappropriate schedule of drug administration [Unknown]
